FAERS Safety Report 23829655 (Version 1)
Quarter: 2024Q2

REPORT INFORMATION
  Report Type: Spontaneous
  Country: US (occurrence: US)
  Receive Date: 20240508
  Receipt Date: 20240508
  Transmission Date: 20240716
  Serious: No
  Sender: FDA-Public Use
  Company Number: US-HALEON-2171951

PATIENT
  Sex: Female

DRUGS (2)
  1. TUMS CHEWY BITES TROPICAL FRUIT SMOOTHIE [Suspect]
     Active Substance: CALCIUM CARBONATE
     Indication: Dyspepsia
  2. TUMS CHEWY BITES TROPICAL FRUIT SMOOTHIE [Suspect]
     Active Substance: CALCIUM CARBONATE
     Indication: Abdominal distension

REACTIONS (3)
  - Exposure during pregnancy [Unknown]
  - Drug effective for unapproved indication [Unknown]
  - Product use in unapproved indication [Unknown]
